FAERS Safety Report 9694956 (Version 3)
Quarter: 2014Q1

REPORT INFORMATION
  Report Type: Spontaneous
  Country: US (occurrence: US)
  Receive Date: 20131119
  Receipt Date: 20140317
  Transmission Date: 20141002
  Serious: No
  Sender: FDA-Public Use
  Company Number: US-PFIZER INC-2013327336

PATIENT
  Age: 81 Year
  Sex: Female
  Weight: 56.7 kg

DRUGS (5)
  1. PREMARIN [Suspect]
     Indication: VAGINAL DISORDER
     Dosage: AT HALF AN APPLICATOR DOSE, WEEKLY
     Route: 067
     Dates: start: 201012
  2. PREMARIN [Suspect]
     Dosage: UNK
  3. PREMARIN [Suspect]
     Dosage: UNK
  4. LISINOPRIL [Concomitant]
     Indication: HYPERTENSION
     Dosage: UNK
  5. SIMVASTATIN [Concomitant]
     Indication: BLOOD CHOLESTEROL INCREASED
     Dosage: UNK

REACTIONS (2)
  - Intentional drug misuse [Unknown]
  - Blood sodium decreased [Unknown]
